FAERS Safety Report 10770647 (Version 1)
Quarter: 2015Q1

REPORT INFORMATION
  Report Type: Spontaneous
  Country: US (occurrence: None)
  Receive Date: 20150206
  Receipt Date: 20150206
  Transmission Date: 20150721
  Serious: No
  Sender: FDA-Public Use
  Company Number: HYP201401-000005

PATIENT
  Age: 17 Year
  Sex: Female

DRUGS (5)
  1. RAVICTI [Suspect]
     Active Substance: GLYCEROL PHENYLBUTYRATE
     Indication: UREA CYCLE ENZYME DEFICIENCY
     Route: 048
     Dates: start: 201309
  2. CITRULLINE [Concomitant]
     Active Substance: CITRULLINE
  3. CALCIUM [Concomitant]
     Active Substance: CALCIUM
  4. VITAMINS [Concomitant]
     Active Substance: VITAMINS
  5. AMINO ACID MIX [Concomitant]

REACTIONS (1)
  - Rash maculo-papular [None]

NARRATIVE: CASE EVENT DATE: 201310
